FAERS Safety Report 5747983-5 (Version None)
Quarter: 2008Q2

REPORT INFORMATION
  Report Type: 
  Country: None (occurrence: None)
  Receive Date: 20080523
  Receipt Date: 20080513
  Transmission Date: 20081010
  Serious: Yes (Other)
  Sender: FDA-Public Use
  Company Number: US-ROCHE-555659

PATIENT
  Sex: Female
  Weight: 52.2 kg

DRUGS (13)
  1. BONIVA [Suspect]
     Indication: OSTEOPOROSIS
     Route: 065
     Dates: start: 20080325, end: 20080325
  2. MORPHINE [Concomitant]
  3. OXYCODONE HCL [Concomitant]
  4. KEPPRA [Concomitant]
  5. CLARINEX [Concomitant]
  6. CLARINEX [Concomitant]
  7. CLARINEX [Concomitant]
  8. CLARINEX [Concomitant]
  9. CLARINEX [Concomitant]
  10. CLARINEX [Concomitant]
  11. TOPROL-XL [Concomitant]
  12. PROTONIX [Concomitant]
  13. XANAX [Concomitant]

REACTIONS (16)
  - ABDOMINAL PAIN UPPER [None]
  - ANOREXIA [None]
  - ASTHENIA [None]
  - BONE PAIN [None]
  - CHEST PAIN [None]
  - DISTURBANCE IN ATTENTION [None]
  - DYSPNOEA [None]
  - EYE PAIN [None]
  - FALL [None]
  - HYPERSOMNIA [None]
  - HYPOAESTHESIA [None]
  - ILL-DEFINED DISORDER [None]
  - NAUSEA [None]
  - PAIN [None]
  - PRURITUS [None]
  - RENAL FAILURE [None]
